FAERS Safety Report 21681734 (Version 1)
Quarter: 2022Q4

REPORT INFORMATION
  Report Type: Spontaneous
  Country: US (occurrence: US)
  Receive Date: 20221205
  Receipt Date: 20221205
  Transmission Date: 20230113
  Serious: No
  Sender: FDA-Public Use
  Company Number: US-CSLP-50600851462-V12660436-4

PATIENT
  Age: 18 Year
  Sex: Female

DRUGS (2)
  1. ANTICOAGULANT SODIUM CITRATE [Suspect]
     Active Substance: SODIUM CITRATE
     Indication: Anticoagulant therapy
     Route: 050
     Dates: start: 20221111, end: 20221111
  2. SALINE [Concomitant]
     Active Substance: SODIUM CHLORIDE
     Indication: Product used for unknown indication
     Route: 065
     Dates: start: 20221111, end: 20221111

REACTIONS (7)
  - Feeling hot [Unknown]
  - Dizziness [Unknown]
  - Hyperhidrosis [Unknown]
  - Movement disorder [Unknown]
  - Nausea [Recovered/Resolved]
  - Hypoaesthesia [Unknown]
  - Paraesthesia [Unknown]

NARRATIVE: CASE EVENT DATE: 20221111
